FAERS Safety Report 11185781 (Version 2)
Quarter: 2015Q2

REPORT INFORMATION
  Report Type: Report from Study
  Country: BE (occurrence: BE)
  Receive Date: 20150612
  Receipt Date: 20150616
  Transmission Date: 20150821
  Serious: Yes (Hospitalization, Other)
  Sender: FDA-Public Use
  Company Number: BE-ASTRAZENECA-2015SE55287

PATIENT
  Age: 17314 Day
  Sex: Female
  Weight: 89.9 kg

DRUGS (10)
  1. DAPAGLIFLOZIN [Suspect]
     Active Substance: DAPAGLIFLOZIN
     Indication: TYPE 1 DIABETES MELLITUS
     Route: 048
     Dates: start: 20150527, end: 20150603
  2. NATRIUM BICARBONATE [Concomitant]
     Dosage: 1.4%
     Route: 065
  3. GLUCOSE [Concomitant]
     Active Substance: DEXTROSE
     Dosage: 5 %
     Route: 065
  4. PARACETAMOL [Concomitant]
     Active Substance: ACETAMINOPHEN
     Route: 065
  5. POTASSIUM GLUCONATE [Concomitant]
     Active Substance: POTASSIUM GLUCONATE
     Dosage: 20  MEQ/15 ML
  6. CHLOROPOTASSURIL [Concomitant]
     Dosage: 20 MEQ/20 ML
  7. NATRIUMCHLORIDE [Concomitant]
     Dosage: 0.9 %
     Route: 065
  8. LEVOFLOXACINE [Concomitant]
     Active Substance: LEVOFLOXACIN
  9. GLUCOSE [Concomitant]
     Active Substance: DEXTROSE
     Dosage: 10%
     Route: 065
  10. INSULIN BIOSYNTHESE [Concomitant]
     Route: 065
     Dates: start: 20080715

REACTIONS (2)
  - Asymptomatic bacteriuria [Recovered/Resolved]
  - Ketoacidosis [Recovered/Resolved]

NARRATIVE: CASE EVENT DATE: 20150603
